FAERS Safety Report 8906478 (Version 1)
Quarter: 2012Q4

REPORT INFORMATION
  Report Type: Spontaneous
  Country: US (occurrence: None)
  Receive Date: 20121113
  Receipt Date: 20121113
  Transmission Date: 20130627
  Serious: No
  Sender: FDA-Public Use
  Company Number: None

PATIENT
  Age: 69 Year
  Sex: Female
  Weight: 63.5 kg

DRUGS (1)
  1. JINTELI [Suspect]
     Indication: MENOPAUSE
     Route: 048
     Dates: start: 20120912, end: 20121112

REACTIONS (5)
  - Hot flush [None]
  - Insomnia [None]
  - Pain in extremity [None]
  - Drug ineffective [None]
  - Product substitution issue [None]
